FAERS Safety Report 23085491 (Version 1)
Quarter: 2023Q4

REPORT INFORMATION
  Report Type: Spontaneous
  Country: CH (occurrence: CH)
  Receive Date: 20231019
  Receipt Date: 20231019
  Transmission Date: 20240110
  Serious: No
  Sender: FDA-Public Use
  Company Number: CH-JAZZ PHARMACEUTICALS-2023-CH-015473

PATIENT
  Age: 41 Year
  Sex: Female

DRUGS (3)
  1. XYREM [Suspect]
     Active Substance: SODIUM OXYBATE
     Indication: Narcolepsy
     Dosage: 2.25 GRAM
     Dates: start: 20230712
  2. MODAFINIL [Concomitant]
     Active Substance: MODAFINIL
     Dosage: FREQUENCY: 2.25 GRAM
  3. PITOLISANT HYDROCHLORIDE [Concomitant]
     Active Substance: PITOLISANT HYDROCHLORIDE
     Dosage: FREQUENCY: 2.25 GRAM

REACTIONS (1)
  - Off label use [Unknown]

NARRATIVE: CASE EVENT DATE: 20230712
